FAERS Safety Report 7714484-4 (Version None)
Quarter: 2011Q3

REPORT INFORMATION
  Report Type: 
  Country: None (occurrence: None)
  Receive Date: 20110829
  Receipt Date: 20110817
  Transmission Date: 20111222
  Serious: No
  Sender: FDA-Public Use
  Company Number: FI-JNJFOC-20110808360

PATIENT
  Age: 50 Year
  Sex: Female

DRUGS (2)
  1. UNKNOWN MEDICATION [Concomitant]
     Indication: PAIN
     Route: 065
  2. DURAGESIC-100 [Suspect]
     Indication: ANALGESIC THERAPY
     Route: 062

REACTIONS (3)
  - PRODUCT ADHESION ISSUE [None]
  - INAPPROPRIATE SCHEDULE OF DRUG ADMINISTRATION [None]
  - PRODUCT LABEL ISSUE [None]
